FAERS Safety Report 14242516 (Version 2)
Quarter: 2017Q4

REPORT INFORMATION
  Report Type: Spontaneous
  Country: JP (occurrence: JP)
  Receive Date: 20171201
  Receipt Date: 20171218
  Transmission Date: 20180321
  Serious: Yes (Hospitalization)
  Sender: FDA-Public Use
  Company Number: PHJP2017JP034666

PATIENT
  Age: 85 Year
  Sex: Male

DRUGS (1)
  1. REVOLADE TAB [Suspect]
     Active Substance: ELTROMBOPAG
     Indication: IMMUNE THROMBOCYTOPENIC PURPURA
     Dosage: 37.5 MG, UNK
     Route: 048
     Dates: start: 20170818

REACTIONS (4)
  - Thalamus haemorrhage [Unknown]
  - Cerebral infarction [Recovered/Resolved]
  - Platelet count decreased [Unknown]
  - Thalamic infarction [Unknown]

NARRATIVE: CASE EVENT DATE: 20171113
